FAERS Safety Report 13935978 (Version 1)
Quarter: 2017Q3

REPORT INFORMATION
  Report Type: Spontaneous
  Country: US (occurrence: US)
  Receive Date: 20170905
  Receipt Date: 20170905
  Transmission Date: 20171127
  Serious: Yes (Death)
  Sender: FDA-Public Use
  Company Number: US-JNJFOC-20170902925

PATIENT
  Sex: Male

DRUGS (15)
  1. ATENOLOL. [Concomitant]
     Active Substance: ATENOLOL
  2. FENTANYL. [Concomitant]
     Active Substance: FENTANYL
  3. IMBRUVICA [Suspect]
     Active Substance: IBRUTINIB
     Indication: MANTLE CELL LYMPHOMA
     Route: 048
     Dates: start: 20170517
  4. ACYCLOVIR. [Concomitant]
     Active Substance: ACYCLOVIR
  5. CYCLOBENZAPRINE. [Concomitant]
     Active Substance: CYCLOBENZAPRINE
  6. ACETAMINOPHEN. [Concomitant]
     Active Substance: ACETAMINOPHEN
  7. LEVOFLOXACIN. [Concomitant]
     Active Substance: LEVOFLOXACIN
  8. RANITIDINE. [Concomitant]
     Active Substance: RANITIDINE
  9. DEXAMETHASONE. [Concomitant]
     Active Substance: DEXAMETHASONE
  10. MIRALAX [Concomitant]
     Active Substance: POLYETHYLENE GLYCOL 3350
  11. PROCHLORPERAZINE. [Concomitant]
     Active Substance: PROCHLORPERAZINE
  12. DICLOFENAC [Concomitant]
     Active Substance: DICLOFENAC
  13. ASPIRIN. [Concomitant]
     Active Substance: ASPIRIN
     Route: 048
  14. GABAPENTIN. [Concomitant]
     Active Substance: GABAPENTIN
  15. OLANZAPINE. [Concomitant]
     Active Substance: OLANZAPINE

REACTIONS (1)
  - Death [Fatal]
